FAERS Safety Report 6749705-8 (Version None)
Quarter: 2010Q2

REPORT INFORMATION
  Report Type: 
  Country: None (occurrence: None)
  Receive Date: 20100527
  Receipt Date: 20100527
  Transmission Date: 20101027
  Serious: Yes (Other)
  Sender: FDA-Public Use
  Company Number: None

PATIENT
  Sex: Male
  Weight: 84.369 kg

DRUGS (1)
  1. NAFCILLIN [Suspect]
     Indication: BACTERAEMIA
     Dosage: 2GM Q4HOURS IV
     Route: 042
     Dates: start: 20100519, end: 20100525

REACTIONS (2)
  - DRY THROAT [None]
  - RASH [None]
